FAERS Safety Report 5002256-3 (Version None)
Quarter: 2006Q2

REPORT INFORMATION
  Report Type: 
  Country: None (occurrence: None)
  Receive Date: 20060504
  Receipt Date: 20060419
  Transmission Date: 20061013
  Serious: Yes (Other)
  Sender: FDA-Public Use
  Company Number: GAM-047-06-USA-FU1

PATIENT
  Age: 33 Year
  Sex: Female
  Weight: 50 kg

DRUGS (5)
  1. OCTAGAM [Suspect]
     Indication: ABORTION SPONTANEOUS
     Dosage: 25GM 1X IV
     Route: 042
     Dates: start: 20060112
  2. OCTAGAM [Suspect]
     Indication: ABORTION SPONTANEOUS
     Dosage: 25GM 1X IV
     Route: 042
     Dates: start: 20060203
  3. ASPIRIN [Concomitant]
  4. FOLGARD OS [Concomitant]
  5. VITAMIN AND MINERAL PRENATAL SUPPLEMENT W/ FOLIC ACID CAP [Concomitant]

REACTIONS (2)
  - ABORTION SPONTANEOUS [None]
  - RASH [None]
